FAERS Safety Report 10473851 (Version 13)
Quarter: 2016Q2

REPORT INFORMATION
  Report Type: Report from Study
  Country: JP (occurrence: JP)
  Receive Date: 20140924
  Receipt Date: 20160429
  Transmission Date: 20160815
  Serious: Yes (Other)
  Sender: FDA-Public Use
  Company Number: JP-PFIZER INC-2014261480

PATIENT
  Age: 63 Year
  Sex: Male

DRUGS (5)
  1. XELJANZ [Suspect]
     Active Substance: TOFACITINIB CITRATE
     Indication: RHEUMATOID ARTHRITIS
     Dosage: 5 MG, DAILY
     Route: 048
     Dates: start: 20140618, end: 20140701
  2. RINDERON V [Concomitant]
     Active Substance: BETAMETHASONE VALERATE
     Dosage: UNK
     Dates: start: 20140818
  3. PREDONINE [Concomitant]
     Active Substance: PREDNISOLONE\PREDNISOLONE ACETATE\PREDNISOLONE SODIUM SUCCINATE
     Dosage: 2.5 MG, DAILY
     Route: 048
     Dates: start: 20140326
  4. METHOTREXATE [Concomitant]
     Active Substance: METHOTREXATE
     Dosage: 10 MG, WEEKLY,METHOTREXATE TANABE
     Dates: end: 20140909
  5. XELJANZ [Suspect]
     Active Substance: TOFACITINIB CITRATE
     Dosage: 5 MG, 2X/DAY
     Route: 048
     Dates: start: 20140702, end: 20140909

REACTIONS (4)
  - Cellulitis [Recovered/Resolved]
  - Staphylococcal infection [Recovered/Resolved]
  - Bursitis infective staphylococcal [Recovered/Resolved]
  - Bursitis [Recovered/Resolved]

NARRATIVE: CASE EVENT DATE: 20140818
